FAERS Safety Report 6581672-2 (Version None)
Quarter: 2010Q1

REPORT INFORMATION
  Report Type: 
  Country: None (occurrence: None)
  Receive Date: 20100211
  Receipt Date: 20100211
  Transmission Date: 20100710
  Serious: Yes (Other)
  Sender: FDA-Public Use
  Company Number: None

PATIENT
  Age: 80 Year
  Sex: Female
  Weight: 82.5547 kg

DRUGS (21)
  1. PRAMIPEXOLE DIHYDROCHLORIDE [Suspect]
     Indication: PARKINSON'S DISEASE
     Dosage: 1 MG TID PO
     Route: 048
     Dates: start: 20100101, end: 20100201
  2. ASPIRIN [Concomitant]
  3. PROPRANOLOL [Concomitant]
  4. SIMVASTATIN [Concomitant]
  5. MIRAPEX [Concomitant]
  6. SINEMET [Concomitant]
  7. ARICEPT [Concomitant]
  8. ANTACID TAB [Concomitant]
  9. MILK OF MAGNESIA TAB [Concomitant]
  10. DOXYCYCLINE [Concomitant]
  11. ALBUTEROL [Concomitant]
  12. ZANTAC [Concomitant]
  13. COENZYME Q10 [Concomitant]
  14. VITAMIN E [Concomitant]
  15. DETROL [Concomitant]
  16. PRIMROSE OIL [Concomitant]
  17. ALPRAZOLAM [Concomitant]
  18. TRAMADOL [Concomitant]
  19. TMC CREAM [Concomitant]
  20. TRAZODONE [Concomitant]
  21. LASIX [Concomitant]

REACTIONS (3)
  - CONDITION AGGRAVATED [None]
  - FALL [None]
  - PARKINSON'S DISEASE [None]
